FAERS Safety Report 6551406-6 (Version None)
Quarter: 2010Q1

REPORT INFORMATION
  Report Type: 
  Country: None (occurrence: None)
  Receive Date: 20100120
  Receipt Date: 20100106
  Transmission Date: 20100710
  Serious: Yes (Hospitalization)
  Sender: FDA-Public Use
  Company Number: 2010EU000055

PATIENT
  Sex: Male
  Weight: 71 kg

DRUGS (8)
  1. TACROLIMUS [Suspect]
     Indication: RENAL TRANSPLANT
     Dosage: 14 MG, /D, ORAL; 25MG, /D, ORAL; 14 MG, /D, ORAL
     Route: 048
     Dates: start: 20090517
  2. TACROLIMUS [Suspect]
     Indication: RENAL TRANSPLANT
     Dosage: 14 MG, /D, ORAL; 25MG, /D, ORAL; 14 MG, /D, ORAL
     Route: 048
     Dates: start: 20090529
  3. TACROLIMUS [Suspect]
     Indication: RENAL TRANSPLANT
     Dosage: 14 MG, /D, ORAL; 25MG, /D, ORAL; 14 MG, /D, ORAL
     Route: 048
     Dates: start: 20090904
  4. MYCOPHENOLATE MOFETIL [Suspect]
     Indication: RENAL TRANSPLANT
     Dosage: 2000MG, /D, ORAL/; 1000MG, /D, ORAL; 1500 MG, /D, ORAL
     Route: 048
     Dates: start: 20090625, end: 20090901
  5. MYCOPHENOLATE MOFETIL [Suspect]
     Indication: RENAL TRANSPLANT
     Dosage: 2000MG, /D, ORAL/; 1000MG, /D, ORAL; 1500 MG, /D, ORAL
     Route: 048
     Dates: start: 20090517
  6. MYCOPHENOLATE MOFETIL [Suspect]
     Indication: RENAL TRANSPLANT
     Dosage: 2000MG, /D, ORAL/; 1000MG, /D, ORAL; 1500 MG, /D, ORAL
     Route: 048
     Dates: start: 20090728
  7. LEVOTHYROXINE SODIUM [Concomitant]
  8. TENOFOVIR DISOPROXIL FUMARATE [Concomitant]

REACTIONS (2)
  - DEEP VEIN THROMBOSIS [None]
  - PULMONARY EMBOLISM [None]
